FAERS Safety Report 12913500 (Version 2)
Quarter: 2016Q4

REPORT INFORMATION
  Report Type: Spontaneous
  Country: JP (occurrence: JP)
  Receive Date: 20161104
  Receipt Date: 20161204
  Transmission Date: 20170207
  Serious: No
  Sender: FDA-Public Use
  Company Number: JP-MYLANLABS-2016M1046675

PATIENT

DRUGS (6)
  1. EPIRUBICIN MYLAN [Suspect]
     Active Substance: EPIRUBICIN
     Dosage: 130 MG, CYCLE
     Route: 041
     Dates: start: 20160809
  2. PROEMEND [Suspect]
     Active Substance: FOSAPREPITANT
     Indication: PRODUCT USED FOR UNKNOWN INDICATION
     Dosage: 150 MG, UNK
     Route: 041
     Dates: start: 20160809
  3. CYCLOPHOSPHAMIDE. [Concomitant]
     Active Substance: CYCLOPHOSPHAMIDE
     Indication: BREAST CANCER
     Dosage: UNK, CYCLE
     Route: 041
     Dates: start: 20160809
  4. EPIRUBICIN MYLAN [Suspect]
     Active Substance: EPIRUBICIN
     Indication: BREAST CANCER
     Dosage: 130 MG, CYCLE
     Route: 041
     Dates: start: 20160809
  5. FLUOROURACIL. [Concomitant]
     Active Substance: FLUOROURACIL
     Indication: BREAST CANCER
     Dosage: UNK, CYCLE
     Route: 041
     Dates: start: 20160809
  6. EPIRUBICIN MYLAN [Suspect]
     Active Substance: EPIRUBICIN
     Dosage: UNK, CYCLE,80% DOSE DECREASED
     Route: 041
     Dates: start: 20161004

REACTIONS (1)
  - Phlebitis [Recovering/Resolving]

NARRATIVE: CASE EVENT DATE: 20161018
